FAERS Safety Report 9228933 (Version 7)
Quarter: 2015Q2

REPORT INFORMATION
  Report Type: Spontaneous
  Country: US (occurrence: US)
  Receive Date: 20130412
  Receipt Date: 20150608
  Transmission Date: 20150821
  Serious: Yes (Disabling)
  Sender: FDA-Public Use
  Company Number: US-009507513-1304USA003838

PATIENT
  Sex: Male
  Weight: 101.3 kg

DRUGS (1)
  1. PROPECIA [Suspect]
     Active Substance: FINASTERIDE
     Indication: ANDROGENETIC ALOPECIA
     Dosage: 1 MG, QD
     Route: 048
     Dates: start: 199808, end: 20111219

REACTIONS (22)
  - Rotator cuff syndrome [Unknown]
  - Sleep apnoea syndrome [Unknown]
  - Sexual dysfunction [Not Recovered/Not Resolved]
  - Loss of libido [Not Recovered/Not Resolved]
  - Back injury [Not Recovered/Not Resolved]
  - Generalised anxiety disorder [Not Recovered/Not Resolved]
  - Fatigue [Recovering/Resolving]
  - Hypercholesterolaemia [Unknown]
  - Joint stiffness [Unknown]
  - Back pain [Unknown]
  - Musculoskeletal pain [Recovered/Resolved]
  - Panic attack [Unknown]
  - Blood testosterone decreased [Unknown]
  - Impaired fasting glucose [Unknown]
  - Type V hyperlipidaemia [Unknown]
  - Hepatic enzyme abnormal [Unknown]
  - Depression [Not Recovered/Not Resolved]
  - Cognitive disorder [Not Recovered/Not Resolved]
  - Hypogonadism male [Unknown]
  - Erectile dysfunction [Unknown]
  - Mood swings [Unknown]
  - Testicular failure [Unknown]

NARRATIVE: CASE EVENT DATE: 199811
